FAERS Safety Report 5083044-9 (Version None)
Quarter: 2006Q3

REPORT INFORMATION
  Report Type: 
  Country: None (occurrence: None)
  Receive Date: 20060814
  Receipt Date: 20060803
  Transmission Date: 20061208
  Serious: Yes (Hospitalization)
  Sender: FDA-Public Use
  Company Number: 2006095146

PATIENT
  Age: 19 Year
  Sex: Male

DRUGS (2)
  1. DALACIN (CLINDAMYCIN HYDROCHLORIDE) [Suspect]
     Indication: DRUG USE FOR UNKNOWN INDICATION
  2. MEDROL [Suspect]
     Indication: DRUG USE FOR UNKNOWN INDICATION

REACTIONS (2)
  - MENINGOCOCCAL BACTERAEMIA [None]
  - SKIN LESION [None]
